FAERS Safety Report 24097618 (Version 2)
Quarter: 2024Q3

REPORT INFORMATION
  Report Type: Spontaneous
  Country: UY (occurrence: UY)
  Receive Date: 20240716
  Receipt Date: 20240723
  Transmission Date: 20241016
  Serious: Yes (Life-Threatening, Hospitalization, Other)
  Sender: FRESENIUS KABI
  Company Number: UY-FreseniusKabi-FK202410959

PATIENT
  Sex: Female

DRUGS (1)
  1. OXYTOCIN [Suspect]
     Active Substance: OXYTOCIN
     Indication: Obstetrical procedure
     Dosage: FREQUENCY OF DOSES: 2?NUMBER OF RECEIVED DOSES: 1?SITE OF ADMINISTRATION: SURGICAL BLOCK?FORM OF ADM
     Route: 042
     Dates: start: 20240707, end: 20240707

REACTIONS (2)
  - Uterine atony [Recovering/Resolving]
  - Maternal exposure during delivery [Unknown]

NARRATIVE: CASE EVENT DATE: 20240707
